FAERS Safety Report 5675252-0 (Version None)
Quarter: 2008Q1

REPORT INFORMATION
  Report Type: 
  Country: None (occurrence: None)
  Receive Date: 20080320
  Receipt Date: 20071211
  Transmission Date: 20080703
  Serious: Yes (Hospitalization, Other)
  Sender: FDA-Public Use
  Company Number: PT-ELI_LILLY_AND_COMPANY-PT200803003545

PATIENT
  Age: 72 Year
  Sex: Female

DRUGS (11)
  1. CYMBALTA [Suspect]
     Indication: DEPRESSION
     Dosage: 60 MG, 2/D
     Route: 048
     Dates: start: 20070101, end: 20070801
  2. OGASTO [Concomitant]
     Dosage: UNK, UNKNOWN
     Route: 065
     Dates: end: 20070101
  3. OGASTO [Concomitant]
     Dosage: 15 MG, UNKNOWN
     Route: 065
  4. TANDIX [Concomitant]
     Dosage: UNK, UNKNOWN
     Route: 065
     Dates: end: 20070101
  5. DECALCIT [Concomitant]
     Dosage: UNK, UNKNOWN
     Route: 065
     Dates: end: 20070101
  6. DECALCIT [Concomitant]
     Dosage: UNK, UNKNOWN
     Route: 065
  7. LOVASTATIN [Concomitant]
     Dosage: UNK, UNKNOWN
     Route: 065
     Dates: end: 20070101
  8. ANSILOR [Concomitant]
     Dosage: UNK, UNKNOWN
     Route: 065
     Dates: end: 20070101
  9. PAZOLAM [Concomitant]
     Dosage: UNK, UNKNOWN
     Route: 065
     Dates: end: 20070101
  10. KAINEVER [Concomitant]
     Dosage: UNK, UNKNOWN
     Route: 065
     Dates: end: 20070101
  11. LIPRIL [Concomitant]
     Dosage: UNK, UNKNOWN
     Route: 065
     Dates: end: 20070101

REACTIONS (8)
  - ARRHYTHMIA [None]
  - BIPOLAR DISORDER [None]
  - BLOOD CHLORIDE DECREASED [None]
  - DEHYDRATION [None]
  - HYPOKALAEMIA [None]
  - HYPONATRAEMIA [None]
  - HYPOTENSION [None]
  - MALAISE [None]
